FAERS Safety Report 17222266 (Version 1)
Quarter: 2020Q1

REPORT INFORMATION
  Report Type: Spontaneous
  Country: US (occurrence: US)
  Receive Date: 20191231
  Receipt Date: 20191231
  Transmission Date: 20200409
  Serious: Yes (Hospitalization)
  Sender: FDA-Public Use
  Company Number: None

PATIENT
  Sex: Female

DRUGS (2)
  1. CHROMIUM [Concomitant]
     Active Substance: CHROMIC CHLORIDE\CHROMIUM
  2. GLEOSTINE [Suspect]
     Active Substance: LOMUSTINE
     Indication: BRAIN NEOPLASM MALIGNANT
     Dosage: ?          OTHER FREQUENCY:ONCE EVERY 42 DAYS;?
     Route: 048
     Dates: start: 20180802

REACTIONS (6)
  - Diarrhoea [None]
  - Aphasia [None]
  - Pyrexia [None]
  - Gait inability [None]
  - Therapeutic product effect decreased [None]
  - Full blood count decreased [None]
